FAERS Safety Report 9292474 (Version 1)
Quarter: 2013Q2

REPORT INFORMATION
  Report Type: Spontaneous
  Country: DE (occurrence: DE)
  Receive Date: 20130516
  Receipt Date: 20130516
  Transmission Date: 20140414
  Serious: Yes (Hospitalization)
  Sender: FDA-Public Use
  Company Number: DE-PFIZER INC-2013145755

PATIENT
  Age: 63 Year
  Sex: Female
  Weight: 60 kg

DRUGS (1)
  1. UNACID [Suspect]
     Indication: RESPIRATORY TRACT INFECTION BACTERIAL
     Dosage: 1.5 G, 3X/DAY
     Route: 042
     Dates: start: 20130219, end: 20130222

REACTIONS (1)
  - Leukopenia [Recovering/Resolving]
